FAERS Safety Report 4347472-9 (Version None)
Quarter: 2004Q2

REPORT INFORMATION
  Report Type: 
  Country: None (occurrence: None)
  Receive Date: 20040422
  Receipt Date: 20040401
  Transmission Date: 20050107
  Serious: Yes (Other)
  Sender: FDA-Public Use
  Company Number: USA040463813

PATIENT
  Age: 65 Year
  Sex: Female
  Weight: 159 kg

DRUGS (2)
  1. HUMALOG [Suspect]
     Indication: DIABETES MELLITUS
     Dosage: 80 U DAY
     Dates: start: 20010101
  2. COUMADIN (WAFARIN SODIUM) [Concomitant]

REACTIONS (9)
  - BLOOD GLUCOSE INCREASED [None]
  - CATARACT [None]
  - COLD SWEAT [None]
  - PHARMACEUTICAL PRODUCT COMPLAINT [None]
  - PULMONARY EMBOLISM [None]
  - SHOCK HYPOGLYCAEMIC [None]
  - THROMBOSIS [None]
  - TREMOR [None]
  - UTERINE CANCER [None]
